FAERS Safety Report 6577259-8 (Version None)
Quarter: 2010Q1

REPORT INFORMATION
  Report Type: 
  Country: None (occurrence: None)
  Receive Date: 20100210
  Receipt Date: 20100202
  Transmission Date: 20100710
  Serious: Yes (Life-Threatening)
  Sender: FDA-Public Use
  Company Number: DE-SANOFI-AVENTIS-2010SA006334

PATIENT
  Age: 58 Year
  Sex: Female

DRUGS (10)
  1. OXALIPLATIN [Suspect]
     Route: 041
  2. OXALIPLATIN [Suspect]
     Route: 041
  3. FLUOROURACIL [Suspect]
     Route: 040
  4. FLUOROURACIL [Suspect]
     Route: 041
  5. FLUOROURACIL [Suspect]
     Route: 040
  6. FLUOROURACIL [Suspect]
     Route: 041
  7. FOLINIC ACID [Suspect]
     Route: 065
  8. FOLINIC ACID [Suspect]
     Route: 041
  9. RAMIPRIL [Concomitant]
     Dates: start: 20080901
  10. BELOC-ZOK [Concomitant]
     Dates: start: 20080901

REACTIONS (1)
  - HYPERTENSIVE EMERGENCY [None]
